FAERS Safety Report 22141329 (Version 1)
Quarter: 2023Q1

REPORT INFORMATION
  Report Type: Spontaneous
  Country: US (occurrence: None)
  Receive Date: 20230325
  Receipt Date: 20230325
  Transmission Date: 20230417
  Serious: Yes (Disabling)
  Sender: FDA-Public Use
  Company Number: None

PATIENT
  Age: 47 Year
  Sex: Male
  Weight: 86.85 kg

DRUGS (1)
  1. FINASTERIDE [Suspect]
     Active Substance: FINASTERIDE
     Indication: Alopecia
     Dosage: OTHER QUANTITY : 20 DROP(S);?FREQUENCY : TWICE A DAY;?
     Route: 061
     Dates: start: 20221101, end: 20230118

REACTIONS (12)
  - Dizziness [None]
  - Libido decreased [None]
  - Muscle twitching [None]
  - Hypoaesthesia [None]
  - Paraesthesia [None]
  - Insomnia [None]
  - Asthenia [None]
  - Weight decreased [None]
  - Fatigue [None]
  - Feeling abnormal [None]
  - Testicular atrophy [None]
  - Feeling abnormal [None]

NARRATIVE: CASE EVENT DATE: 20230119
